FAERS Safety Report 8248620-0 (Version None)
Quarter: 2012Q1

REPORT INFORMATION
  Report Type: 
  Country: None (occurrence: None)
  Receive Date: 20120330
  Receipt Date: 20111022
  Transmission Date: 20120608
  Serious: Yes (Other)
  Sender: FDA-Public Use
  Company Number: PHHY2011GB95295

PATIENT
  Age: 4 Year
  Sex: Male

DRUGS (7)
  1. PHENOBARBITAL TAB [Suspect]
     Indication: CONVULSION
     Dosage: UNK UKN, UNK
  2. LEVETIRACETAM [Suspect]
     Indication: CONVULSION
     Dosage: UNK UKN, UNK
  3. VALPROATE SODIUM [Suspect]
     Dosage: UNK UKN, UNK
  4. BENZODIAZEPINES [Suspect]
     Indication: CONVULSION
     Dosage: UNK UKN, UNK
  5. CARBAMAZEPINE [Suspect]
     Indication: CONVULSION
  6. LAMOTRGINE [Suspect]
     Indication: CONVULSION
     Dosage: UNK UKN, UNK
  7. PREDNISOLONE [Concomitant]
     Dosage: 20 MG, UNK
     Route: 048

REACTIONS (3)
  - TEMPORAL LOBE EPILEPSY [None]
  - STATUS EPILEPTICUS [None]
  - DRUG RESISTANCE [None]
